FAERS Safety Report 5274855-5 (Version None)
Quarter: 2007Q1

REPORT INFORMATION
  Report Type: 
  Country: None (occurrence: None)
  Receive Date: 20061208
  Receipt Date: 20051219
  Transmission Date: 20070707
  Serious: Yes (Hospitalization)
  Sender: FDA-Public Use
  Company Number: 2005UW19106

PATIENT
  Age: 78 Year
  Sex: Female
  Weight: 102.0593 kg

DRUGS (1)
  1. CRESTOR [Suspect]
     Indication: BLOOD CHOLESTEROL INCREASED
     Dates: start: 20050207, end: 20050221

REACTIONS (1)
  - RHABDOMYOLYSIS [None]
